FAERS Safety Report 24364228 (Version 5)
Quarter: 2025Q2

REPORT INFORMATION
  Report Type: Spontaneous
  Country: JP (occurrence: JP)
  Receive Date: 20240925
  Receipt Date: 20250430
  Transmission Date: 20250716
  Serious: Yes (Death, Life-Threatening, Hospitalization, Other)
  Sender: BRISTOL-MYERS SQUIBB COMPANY
  Company Number: JP-ONO-2024JP019758

PATIENT
  Age: 55 Year
  Sex: Male
  Weight: 45.3 kg

DRUGS (4)
  1. OPDIVO [Suspect]
     Active Substance: NIVOLUMAB
     Indication: Oesophageal carcinoma
     Route: 041
     Dates: start: 20240104, end: 20240201
  2. LANSOPRAZOLE [Concomitant]
     Active Substance: LANSOPRAZOLE
     Indication: Product used for unknown indication
     Route: 048
     Dates: start: 20231212, end: 20240327
  3. URSODIOL [Concomitant]
     Active Substance: URSODIOL
     Indication: Product used for unknown indication
     Route: 048
     Dates: start: 20240208, end: 20240308
  4. AMMONIUM GLYCYRRHIZATE\GLYCINE\RACEMETHIONINE [Concomitant]
     Active Substance: AMMONIUM GLYCYRRHIZATE\GLYCINE\RACEMETHIONINE
     Indication: Product used for unknown indication
     Route: 048
     Dates: start: 20240208, end: 20240308

REACTIONS (9)
  - Pneumomediastinum [Unknown]
  - Sepsis [Unknown]
  - Ventricular tachycardia [Unknown]
  - Immune-mediated adrenal insufficiency [Unknown]
  - Hypopituitarism [Unknown]
  - Fall [Unknown]
  - Immune-mediated lung disease [Fatal]
  - Respiratory alkalosis [Unknown]
  - Myocarditis [Unknown]

NARRATIVE: CASE EVENT DATE: 20240219
